FAERS Safety Report 6804781-9 (Version None)
Quarter: 2010Q2

REPORT INFORMATION
  Report Type: 
  Country: None (occurrence: None)
  Receive Date: 20100628
  Receipt Date: 20060918
  Transmission Date: 20101027
  Serious: Yes (Other)
  Sender: FDA-Public Use
  Company Number: US-PFIZER INC-2006112069

PATIENT
  Sex: Male
  Weight: 88.9 kg

DRUGS (8)
  1. SUTENT [Suspect]
     Indication: RENAL CELL CARCINOMA
     Dates: start: 20060308
  2. PROTONIX [Concomitant]
  3. ZOCOR [Concomitant]
  4. TOPROL-XL [Concomitant]
  5. NORVASC [Concomitant]
  6. ACETYLSALICYLIC ACID [Concomitant]
  7. RENAGEL [Concomitant]
  8. SENSIPAR [Concomitant]

REACTIONS (1)
  - METASTASES TO LUNG [None]
